FAERS Safety Report 26180864 (Version 1)
Quarter: 2025Q4

REPORT INFORMATION
  Report Type: Spontaneous
  Country: US (occurrence: US)
  Receive Date: 20251221
  Receipt Date: 20251221
  Transmission Date: 20260117
  Serious: No
  Sender: MILLICENT HOLDINGS
  Company Number: US-Millicent Holdings Ltd.-MILL20250367

PATIENT
  Age: 40 Year
  Sex: Female

DRUGS (2)
  1. FEMRING [Suspect]
     Active Substance: ESTRADIOL ACETATE
     Indication: Menopausal symptoms
     Dosage: 0.05 MG/DAY, ONE FEMRING EVERY 6 WEEKS
     Route: 067
     Dates: start: 2000, end: 202511
  2. estradiol 0.1 patch [Concomitant]
     Indication: Product used for unknown indication
     Dosage: 0.1 TWICE A WEEK
     Route: 062

REACTIONS (8)
  - Anger [Not Recovered/Not Resolved]
  - Therapeutic product effect decreased [Unknown]
  - Menopausal symptoms [Not Recovered/Not Resolved]
  - Crying [Not Recovered/Not Resolved]
  - Irritability [Not Recovered/Not Resolved]
  - Off label use [Unknown]
  - Insurance issue [Unknown]
  - Product dose omission issue [Unknown]

NARRATIVE: CASE EVENT DATE: 20000101
